APPROVED DRUG PRODUCT: POTASSIUM CHLORIDE
Active Ingredient: POTASSIUM CHLORIDE
Strength: 10MEQ
Dosage Form/Route: TABLET, EXTENDED RELEASE;ORAL
Application: A213588 | Product #001
Applicant: BRECKENRIDGE PHARMACEUTICAL INC
Approved: Aug 21, 2020 | RLD: No | RS: No | Type: DISCN